FAERS Safety Report 8139660-0 (Version None)
Quarter: 2012Q1

REPORT INFORMATION
  Report Type: 
  Country: None (occurrence: None)
  Receive Date: 20120215
  Receipt Date: 20120210
  Transmission Date: 20120608
  Serious: Yes (Disabling, Other)
  Sender: FDA-Public Use
  Company Number: US-PFIZER INC-2012037031

PATIENT
  Sex: Female

DRUGS (4)
  1. LYRICA [Suspect]
     Indication: POST HERPETIC NEURALGIA
     Dosage: 75 MG, 3X/DAY
  2. CARBATROL [Suspect]
     Indication: NEURALGIA
     Dosage: 200 MG, UNK
  3. BACLOFEN [Suspect]
     Indication: NEURALGIA
     Dosage: 10 MG, UNK
  4. AMITRIPTYLINE HCL [Suspect]
     Indication: NEURALGIA
     Dosage: 50 MG, UNK

REACTIONS (5)
  - IMPAIRED WORK ABILITY [None]
  - DIZZINESS [None]
  - DRUG INEFFECTIVE [None]
  - PAIN [None]
  - SOMNOLENCE [None]
